FAERS Safety Report 19020673 (Version 2)
Quarter: 2021Q2

REPORT INFORMATION
  Report Type: Spontaneous
  Country: IT (occurrence: IT)
  Receive Date: 20210317
  Receipt Date: 20210401
  Transmission Date: 20210717
  Serious: Yes (Hospitalization)
  Sender: FDA-Public Use
  Company Number: IT-GLAXOSMITHKLINE-IT2021060108

PATIENT
  Age: 16 Year
  Sex: Male
  Weight: 119 kg

DRUGS (2)
  1. BENTELAN (BETAMETHASONE SODIUM PHOSPHATE) [Concomitant]
     Active Substance: BETAMETHASONE SODIUM PHOSPHATE
     Indication: ASTHMA
     Dosage: 1 MG
     Route: 048
  2. VENTOLIN [Suspect]
     Active Substance: ALBUTEROL SULFATE
     Indication: ASTHMA
     Dosage: 100 ?G (1 AS NECESSARY)
     Route: 048

REACTIONS (4)
  - Hypertension [Recovered/Resolved]
  - Presyncope [Recovered/Resolved]
  - Tachycardia [Recovered/Resolved]
  - Palpitations [Recovered/Resolved]
